FAERS Safety Report 12946761 (Version 1)
Quarter: 2016Q4

REPORT INFORMATION
  Report Type: Spontaneous
  Country: GB (occurrence: GB)
  Receive Date: 20161116
  Receipt Date: 20161116
  Transmission Date: 20170207
  Serious: Yes (Other)
  Sender: FDA-Public Use
  Company Number: GB-TEVA-710766ACC

PATIENT
  Age: 80 Year
  Sex: Female

DRUGS (14)
  1. LACTULOSE. [Concomitant]
     Active Substance: LACTULOSE
  2. ZOPICLONE [Concomitant]
     Active Substance: ZOPICLONE
  3. CLINDAMYCIN. [Suspect]
     Active Substance: CLINDAMYCIN
     Indication: WOUND INFECTION
     Dosage: 1800 MILLIGRAM DAILY;
     Route: 048
     Dates: start: 20161017, end: 20161019
  4. PARACETAMOL [Concomitant]
     Active Substance: ACETAMINOPHEN
  5. EPILIM [Concomitant]
     Active Substance: VALPROATE SODIUM
  6. TROSPIUM CHLORIDE. [Concomitant]
     Active Substance: TROSPIUM CHLORIDE
  7. DOCUSATE [Concomitant]
     Active Substance: DOCUSATE
  8. LERCANIDIPINE [Concomitant]
     Active Substance: LERCANIDIPINE
  9. RAMIPRIL. [Concomitant]
     Active Substance: RAMIPRIL
  10. DOSULEPIN HYDROCHLORIDE [Concomitant]
     Active Substance: DOTHIEPIN HYDROCHLORIDE
  11. PIVMECILLINAM [Concomitant]
     Active Substance: PENICILLIN
  12. TEICOPLANIN [Concomitant]
     Active Substance: TEICOPLANIN
  13. OMEPRAZOLE. [Concomitant]
     Active Substance: OMEPRAZOLE
  14. RIVAROXABAN [Concomitant]
     Active Substance: RIVAROXABAN

REACTIONS (1)
  - Swollen tongue [Recovered/Resolved]

NARRATIVE: CASE EVENT DATE: 20161019
